FAERS Safety Report 9808090 (Version 1)
Quarter: 2014Q1

REPORT INFORMATION
  Report Type: Spontaneous
  Country: US (occurrence: US)
  Receive Date: 20140110
  Receipt Date: 20140110
  Transmission Date: 20141002
  Serious: Yes (Death)
  Sender: FDA-Public Use
  Company Number: US-PFIZER INC-2014003103

PATIENT
  Age: 79 Year
  Sex: Male

DRUGS (1)
  1. VFEND [Suspect]
     Indication: PNEUMONIA FUNGAL
     Dosage: 200 MG, 2X/DAY
     Dates: start: 20131001

REACTIONS (1)
  - Leukaemia [Fatal]
